FAERS Safety Report 4708681-X (Version None)
Quarter: 2005Q3

REPORT INFORMATION
  Report Type: 
  Country: None (occurrence: None)
  Receive Date: 20050706
  Receipt Date: 20050623
  Transmission Date: 20060218
  Serious: Yes (Other)
  Sender: FDA-Public Use
  Company Number: 2005092765

PATIENT
  Sex: Male
  Weight: 100.2449 kg

DRUGS (4)
  1. VIAGRA [Suspect]
     Indication: ERECTILE DYSFUNCTION
     Dosage: (50 MG, AS NECESSARY), ORAL
     Route: 048
  2. DIOVAN ^CIBA-GEIGY^ (VALSARTAN) [Concomitant]
  3. NEXIUM [Concomitant]
  4. VITAMINS (VITAMINS) [Concomitant]

REACTIONS (4)
  - NAUSEA [None]
  - PHOTOSENSITIVITY REACTION [None]
  - PROSTATE CANCER [None]
  - VISION BLURRED [None]
